FAERS Safety Report 17052631 (Version 1)
Quarter: 2019Q4

REPORT INFORMATION
  Report Type: Spontaneous
  Country: US (occurrence: US)
  Receive Date: 20191119
  Receipt Date: 20191119
  Transmission Date: 20200122
  Serious: Yes (Hospitalization)
  Sender: FDA-Public Use
  Company Number: None

PATIENT
  Age: 23 Year
  Sex: Male

DRUGS (5)
  1. EPIDIOLEX [Suspect]
     Active Substance: CANNABIDIOL
     Indication: LENNOX-GASTAUT SYNDROME
     Route: 048
     Dates: start: 20190816
  2. BANZEL 40MG/ML [Concomitant]
  3. CLOBAZAM 10MG [Concomitant]
  4. VALPROIC ACID 250MG/ML [Concomitant]
  5. CLONAZEPAM 0.5MG [Concomitant]
     Active Substance: CLONAZEPAM

REACTIONS (2)
  - Gastroenteritis viral [None]
  - Pneumonia [None]

NARRATIVE: CASE EVENT DATE: 20191101
